FAERS Safety Report 9771695 (Version 1)
Quarter: 2013Q4

REPORT INFORMATION
  Report Type: Spontaneous
  Country: US (occurrence: US)
  Receive Date: 20131219
  Receipt Date: 20131219
  Transmission Date: 20140711
  Serious: No
  Sender: FDA-Public Use
  Company Number: US-BIOGENIDEC-2013BI121131

PATIENT
  Sex: Female

DRUGS (14)
  1. AVONEX [Suspect]
     Indication: MULTIPLE SCLEROSIS
     Route: 030
     Dates: start: 20090205
  2. AMANTADINE HCL [Concomitant]
  3. AMBIEN [Concomitant]
  4. BACLOFEN [Concomitant]
  5. CO Q 10 [Concomitant]
  6. ELAVIL [Concomitant]
  7. FOLIC ACID [Concomitant]
  8. HYZAAR [Concomitant]
  9. LIPITOR [Concomitant]
  10. LOSARTAN POTASSIUM [Concomitant]
  11. NORVASC [Concomitant]
  12. SINGULAIR [Concomitant]
  13. SYMBICORT [Concomitant]
  14. ZOLOFT [Concomitant]

REACTIONS (1)
  - Injection site haemorrhage [Unknown]
